FAERS Safety Report 14243567 (Version 2)
Quarter: 2017Q4

REPORT INFORMATION
  Report Type: Spontaneous
  Country: DE (occurrence: DE)
  Receive Date: 20171201
  Receipt Date: 20171206
  Transmission Date: 20180321
  Serious: Yes (Hospitalization, Other)
  Sender: FDA-Public Use
  Company Number: DE-PFIZER INC-2017509864

PATIENT
  Sex: Female

DRUGS (2)
  1. VENLAFAXINE HCL [Suspect]
     Active Substance: VENLAFAXINE HYDROCHLORIDE
     Dosage: UNK
  2. ELONTRIL [Suspect]
     Active Substance: BUPROPION HYDROCHLORIDE
     Dosage: UNK

REACTIONS (1)
  - Acute hepatic failure [Unknown]
